FAERS Safety Report 5010358-0 (Version None)
Quarter: 2006Q2

REPORT INFORMATION
  Report Type: 
  Country: None (occurrence: None)
  Receive Date: 20060523
  Receipt Date: 20060509
  Transmission Date: 20061013
  Serious: Yes (Hospitalization)
  Sender: FDA-Public Use
  Company Number: 2006RR-02261

PATIENT
  Age: 13 Year
  Sex: Male

DRUGS (4)
  1. MINOCYCLINE HYDROCHLORIDE [Suspect]
     Indication: INFECTION
  2. MINOCYCLINE HYDROCHLORIDE [Suspect]
     Indication: SHUNT MALFUNCTION
  3. RIFAMPICIN [Suspect]
     Indication: INFECTION
  4. RIFAMPICIN [Suspect]
     Indication: SHUNT MALFUNCTION

REACTIONS (2)
  - CATHETER RELATED COMPLICATION [None]
  - MENINGITIS EOSINOPHILIC [None]
